FAERS Safety Report 23919791 (Version 1)
Quarter: 2024Q2

REPORT INFORMATION
  Report Type: Spontaneous
  Country: IT (occurrence: IT)
  Receive Date: 20240530
  Receipt Date: 20240530
  Transmission Date: 20240716
  Serious: Yes (Other)
  Sender: FDA-Public Use
  Company Number: None

PATIENT
  Age: 73 Year
  Sex: Male
  Weight: 71 kg

DRUGS (1)
  1. GEMCITABINE [Suspect]
     Active Substance: GEMCITABINE
     Indication: Adenocarcinoma pancreas
     Dosage: 1300 MG
     Route: 042
     Dates: start: 20240108, end: 20240506

REACTIONS (3)
  - Muscular weakness [Not Recovered/Not Resolved]
  - Ageusia [Not Recovered/Not Resolved]
  - Neuropathy peripheral [Recovering/Resolving]

NARRATIVE: CASE EVENT DATE: 20240108
